FAERS Safety Report 8913615 (Version 1)
Quarter: 2012Q4

REPORT INFORMATION
  Report Type: 
  Country: US (occurrence: None)
  Receive Date: 20121114
  Receipt Date: 20121114
  Transmission Date: 20130627
  Serious: Yes (Hospitalization)
  Sender: FDA-Public Use
  Company Number: PRED20120067

PATIENT
  Age: 63 Year
  Sex: Female

DRUGS (4)
  1. PREDNISONE [Suspect]
     Indication: PRODUCT USED FOR UNKNOWN INDICATION
     Dosage: 10mg, 1 in 1 d, oral
     Route: 048
  2. CYCLOSPORINE A [Suspect]
     Indication: PRODUCT USED FOR UNKNOWN INDICATION
     Dosage: 400 mg, 2 in 1 d, oral
     Route: 048
  3. CALCIUM [Concomitant]
  4. ATENOLOL [Concomitant]

REACTIONS (7)
  - Chest discomfort [None]
  - Dyspnoea [None]
  - Hyperhidrosis [None]
  - Anxiety [None]
  - Acute myocardial infarction [None]
  - Electrocardiogram T wave inversion [None]
  - Coronary artery dissection [None]
